FAERS Safety Report 22390852 (Version 2)
Quarter: 2023Q2

REPORT INFORMATION
  Report Type: Report from Study
  Country: US (occurrence: US)
  Receive Date: 20230601
  Receipt Date: 20230606
  Transmission Date: 20230722
  Serious: Yes (Hospitalization)
  Sender: FDA-Public Use
  Company Number: US-ABBVIE-5184432

PATIENT
  Sex: Female

DRUGS (1)
  1. VENCLEXTA [Suspect]
     Active Substance: VENETOCLAX
     Indication: Acute myeloid leukaemia
     Dosage: LAST ADMIN DATE 2023
     Route: 048
     Dates: start: 20230209

REACTIONS (11)
  - Contusion [Unknown]
  - Pyrexia [Not Recovered/Not Resolved]
  - Platelet count decreased [Unknown]
  - Pain [Unknown]
  - Dyspnoea [Unknown]
  - Transfusion reaction [Unknown]
  - Peripheral swelling [Unknown]
  - Mobility decreased [Unknown]
  - Full blood count abnormal [Unknown]
  - Incoherent [Unknown]
  - Haemorrhage [Unknown]

NARRATIVE: CASE EVENT DATE: 20230101
